FAERS Safety Report 4907433-5 (Version None)
Quarter: 2006Q1

REPORT INFORMATION
  Report Type: 
  Country: None (occurrence: None)
  Receive Date: 20060210
  Receipt Date: 20060201
  Transmission Date: 20060701
  Serious: Yes (Death, Other)
  Sender: FDA-Public Use
  Company Number: JP-MERCK-0602USA00527

PATIENT
  Sex: Female
  Weight: 27 kg

DRUGS (1)
  1. STROMECTOL [Suspect]
     Indication: ACARODERMATITIS
     Route: 048
     Dates: start: 20060123, end: 20060123

REACTIONS (2)
  - DEATH [None]
  - HEPATIC FUNCTION ABNORMAL [None]
